FAERS Safety Report 15457211 (Version 3)
Quarter: 2018Q4

REPORT INFORMATION
  Report Type: Spontaneous
  Country: JP (occurrence: JP)
  Receive Date: 20181002
  Receipt Date: 20181029
  Transmission Date: 20190204
  Serious: Yes (Hospitalization, Disabling, Other)
  Sender: FDA-Public Use
  Company Number: JP-009507513-1807JPN001524J

PATIENT
  Age: 72 Year
  Sex: Female
  Weight: 59 kg

DRUGS (9)
  1. BONVIVA [Concomitant]
     Active Substance: IBANDRONATE SODIUM
     Indication: OSTEOPOROSIS
     Dosage: 1 MG, QM
     Route: 042
  2. EDIROL [Concomitant]
     Active Substance: ELDECALCITOL
     Indication: OSTEOPOROSIS
     Dosage: 0.75 MICROGRAM, QD
  3. LANSOPRAZOLE OD [Concomitant]
     Active Substance: LANSOPRAZOLE
     Indication: PAIN
     Dosage: 15 MG, QD
     Route: 048
  4. CELECOX [Concomitant]
     Active Substance: CELECOXIB
     Indication: PAIN
     Dosage: 100 MG, BID
     Route: 048
  5. AMITIZA [Concomitant]
     Active Substance: LUBIPROSTONE
     Dosage: 48 MICROGRAM, UNKNOWN
     Route: 048
     Dates: end: 20180809
  6. BIO-THREE [Concomitant]
     Active Substance: HERBALS
     Dosage: 2 DF, TID
     Route: 048
  7. OXYCONTIN [Concomitant]
     Active Substance: OXYCODONE HYDROCHLORIDE
     Indication: PAIN
     Dosage: 20 MG, BID
     Route: 048
     Dates: end: 20180704
  8. SENNOSIDE [Concomitant]
     Active Substance: SENNOSIDES
     Indication: BOWEL MOVEMENT IRREGULARITY
     Dosage: 36 MG, UNKNOWN
     Route: 048
  9. KEYTRUDA [Suspect]
     Active Substance: PEMBROLIZUMAB
     Indication: TRANSITIONAL CELL CARCINOMA
     Dosage: 200 MG, Q3W
     Route: 041
     Dates: start: 20180508, end: 20180619

REACTIONS (3)
  - Hypothalamo-pituitary disorder [Not Recovered/Not Resolved]
  - Malignant neoplasm progression [Unknown]
  - Fistula [Unknown]

NARRATIVE: CASE EVENT DATE: 2018
